FAERS Safety Report 11418314 (Version 2)
Quarter: 2015Q4

REPORT INFORMATION
  Report Type: Spontaneous
  Country: CH (occurrence: CH)
  Receive Date: 20150825
  Receipt Date: 20151005
  Transmission Date: 20160304
  Serious: Yes (Hospitalization)
  Sender: FDA-Public Use
  Company Number: CH-BRISTOL-MYERS SQUIBB COMPANY-BMS-2015-055548

PATIENT
  Age: 45 Year
  Sex: Male

DRUGS (2)
  1. REBALANCE [Interacting]
     Active Substance: HYPERICUM PERFORATUM
     Indication: DEPRESSIVE SYMPTOM
     Route: 048
  2. ABILIFY [Suspect]
     Active Substance: ARIPIPRAZOLE
     Indication: SCHIZOAFFECTIVE DISORDER
     Dosage: 25 MG, QD
     Route: 048

REACTIONS (2)
  - Psychotic disorder [Unknown]
  - Drug interaction [Unknown]
